FAERS Safety Report 11345932 (Version 1)
Quarter: 2015Q3

REPORT INFORMATION
  Report Type: Spontaneous
  Country: US (occurrence: US)
  Receive Date: 20150803
  Receipt Date: 20150803
  Transmission Date: 20151125
  Serious: No
  Sender: FDA-Public Use
  Company Number: US-ELI_LILLY_AND_COMPANY-US200910004423

PATIENT

DRUGS (1)
  1. STRATTERA [Suspect]
     Active Substance: ATOMOXETINE HYDROCHLORIDE
     Dosage: 80 MG, EACH MORNING
     Dates: start: 200901

REACTIONS (6)
  - Insomnia [Unknown]
  - Dry mouth [Not Recovered/Not Resolved]
  - Abnormal dreams [Unknown]
  - Orgasm abnormal [Unknown]
  - Abdominal pain upper [Unknown]
  - Dysgeusia [Unknown]

NARRATIVE: CASE EVENT DATE: 200901
